FAERS Safety Report 10120211 (Version 2)
Quarter: 2014Q2

REPORT INFORMATION
  Report Type: Spontaneous
  Country: US (occurrence: US)
  Receive Date: 20140425
  Receipt Date: 20140609
  Transmission Date: 20141212
  Serious: No
  Sender: FDA-Public Use
  Company Number: US-PFIZER INC-2014112171

PATIENT
  Age: 63 Year
  Sex: Female

DRUGS (5)
  1. XALKORI [Suspect]
     Indication: LUNG NEOPLASM MALIGNANT
     Dosage: 200 MG, 2X/DAY
     Route: 048
     Dates: start: 201212
  2. ASPIRIN [Concomitant]
     Dosage: 81 MG, QD
  3. CARVEDILOL [Concomitant]
     Dosage: 25, 2X/DAY
  4. LOVENOX [Concomitant]
     Dosage: 80, 2X/DAY
     Route: 058
  5. RANITIDINE [Concomitant]
     Dosage: 150, 2X/DAY

REACTIONS (2)
  - Amnesia [Unknown]
  - Off label use [Unknown]
